FAERS Safety Report 19965242 (Version 1)
Quarter: 2021Q4

REPORT INFORMATION
  Report Type: Spontaneous
  Country: PL (occurrence: PL)
  Receive Date: 20211018
  Receipt Date: 20211018
  Transmission Date: 20220303
  Serious: No
  Sender: FDA-Public Use
  Company Number: PL-LUPIN PHARMACEUTICALS INC.-2021-19521

PATIENT
  Age: 9 Year
  Sex: Female

DRUGS (20)
  1. AZITHROMYCIN ANHYDROUS [Suspect]
     Active Substance: AZITHROMYCIN ANHYDROUS
     Indication: COVID-19
     Dosage: 10 MILLIGRAM/KILOGRAM, DAILY, FIRST DOSE
     Route: 065
     Dates: start: 2020
  2. AZITHROMYCIN ANHYDROUS [Suspect]
     Active Substance: AZITHROMYCIN ANHYDROUS
     Dosage: 5 MILLIGRAM/KILOGRAM, BID
     Route: 065
     Dates: start: 2020
  3. COPEGUS [Suspect]
     Active Substance: RIBAVIRIN
     Indication: Metapneumovirus infection
     Dosage: 200 MILLIGRAM, BID
     Route: 048
     Dates: start: 2020
  4. COPEGUS [Suspect]
     Active Substance: RIBAVIRIN
     Indication: Respiratory syncytial virus infection
     Dosage: RESTARTED ON POST-TRANSPLANT DAY +10
     Route: 048
     Dates: start: 2020
  5. COPEGUS [Suspect]
     Active Substance: RIBAVIRIN
     Indication: COVID-19
  6. CHLOROQUINE [Suspect]
     Active Substance: CHLOROQUINE
     Indication: COVID-19
     Dosage: 10 MILLIGRAM/KILOGRAM
     Route: 065
     Dates: start: 2020
  7. BORTEZOMIB [Concomitant]
     Active Substance: BORTEZOMIB
     Indication: B precursor type acute leukaemia
     Dosage: UNK
     Route: 065
  8. BLINATUMOMAB [Concomitant]
     Active Substance: BLINATUMOMAB
     Indication: B precursor type acute leukaemia
     Dosage: ONE COURSE
     Route: 065
  9. ETOPOSIDE [Concomitant]
     Active Substance: ETOPOSIDE
     Indication: Bone marrow conditioning regimen
     Dosage: 60 MILLIGRAM/KILOGRAM
     Route: 065
     Dates: start: 2020
  10. GRAFALON [Concomitant]
     Active Substance: LAPINE T-LYMPHOCYTE IMMUNE GLOBULIN
     Indication: Bone marrow conditioning regimen
     Dosage: 45 MILLIGRAM/KILOGRAM
     Route: 065
     Dates: start: 2020
  11. CYCLOSPORINE [Concomitant]
     Active Substance: CYCLOSPORINE
     Indication: Prophylaxis against graft versus host disease
     Dosage: FROM PRETRANSPLANT DAY -1
     Route: 065
     Dates: start: 2020
  12. METHOTREXATE [Concomitant]
     Active Substance: METHOTREXATE
     Indication: Prophylaxis against graft versus host disease
     Dosage: ON POST-TRANSPLANT DAYS +1, +3, AND +6
     Route: 065
     Dates: start: 2020
  13. PIPERACILLIN SODIUM\TAZOBACTAM SODIUM [Concomitant]
     Active Substance: PIPERACILLIN SODIUM\TAZOBACTAM SODIUM
     Indication: Evidence based treatment
     Dosage: UNK
     Route: 065
     Dates: start: 2020
  14. PIPERACILLIN SODIUM\TAZOBACTAM SODIUM [Concomitant]
     Active Substance: PIPERACILLIN SODIUM\TAZOBACTAM SODIUM
     Indication: Antibiotic therapy
  15. AMIKACIN [Concomitant]
     Active Substance: AMIKACIN
     Indication: Evidence based treatment
     Dosage: UNK
     Route: 065
     Dates: start: 2020
  16. AMIKACIN [Concomitant]
     Active Substance: AMIKACIN
     Indication: Antibiotic therapy
  17. FENOTEROL [Concomitant]
     Active Substance: FENOTEROL
     Indication: Metapneumovirus infection
     Dosage: NEBULISED
     Route: 065
     Dates: start: 2020
  18. FENOTEROL [Concomitant]
     Active Substance: FENOTEROL
     Indication: Respiratory syncytial virus infection
  19. IPRATROPIUM BROMIDE [Concomitant]
     Active Substance: IPRATROPIUM BROMIDE
     Indication: Metapneumovirus infection
     Dosage: NEBULISED
     Route: 065
     Dates: start: 2020
  20. IPRATROPIUM BROMIDE [Concomitant]
     Active Substance: IPRATROPIUM BROMIDE
     Indication: Respiratory syncytial virus infection

REACTIONS (1)
  - Off label use [Unknown]

NARRATIVE: CASE EVENT DATE: 20200101
